FAERS Safety Report 7425995-3 (Version None)
Quarter: 2011Q2

REPORT INFORMATION
  Report Type: 
  Country: None (occurrence: None)
  Receive Date: 20110420
  Receipt Date: 20110412
  Transmission Date: 20111010
  Serious: Yes (Death)
  Sender: FDA-Public Use
  Company Number: FR-ROCHE-771480

PATIENT
  Sex: Female
  Weight: 71 kg

DRUGS (5)
  1. PACLITAXEL [Suspect]
     Dosage: FREQUENCY: WEEKLY, LAST DOSE PRIOR TO SAE ON 24 SEPTEMBER 2010.
     Route: 042
     Dates: start: 20100402, end: 20100924
  2. BEVACIZUMAB [Suspect]
     Route: 042
     Dates: start: 20100402, end: 20100625
  3. BEVACIZUMAB [Suspect]
     Route: 042
     Dates: end: 20101112
  4. BEVACIZUMAB [Suspect]
     Dosage: LAST DOSE PRIOR TO SAE ON 24 DECEMBER 2010.
     Route: 042
  5. BEVACIZUMAB [Suspect]
     Route: 042
     Dates: start: 20100730

REACTIONS (1)
  - ABDOMINAL PAIN [None]
